FAERS Safety Report 13736542 (Version 1)
Quarter: 2017Q3

REPORT INFORMATION
  Report Type: Spontaneous
  Country: GB (occurrence: GB)
  Receive Date: 20170710
  Receipt Date: 20170710
  Transmission Date: 20171127
  Serious: Yes (Hospitalization, Other)
  Sender: FDA-Public Use
  Company Number: GB-GLAXOSMITHKLINE-GB2017105400

PATIENT
  Age: 56 Year
  Sex: Female
  Weight: 44.45 kg

DRUGS (2)
  1. LAMOTRIGINE. [Suspect]
     Active Substance: LAMOTRIGINE
     Indication: SEIZURE
     Dosage: 50 MG, UNK
     Route: 048
     Dates: start: 20160903, end: 20160930
  2. COCODAMOL [Concomitant]
     Active Substance: ACETAMINOPHEN\CODEINE PHOSPHATE
     Dosage: UNK

REACTIONS (8)
  - Nausea [Unknown]
  - Malaise [Unknown]
  - Abnormal loss of weight [Unknown]
  - Pyrexia [Unknown]
  - Decreased appetite [Unknown]
  - Seizure [Unknown]
  - Tremor [Unknown]
  - Hyperhidrosis [Unknown]

NARRATIVE: CASE EVENT DATE: 20160905
